FAERS Safety Report 8285116-4 (Version None)
Quarter: 2012Q2

REPORT INFORMATION
  Report Type: 
  Country: None (occurrence: None)
  Receive Date: 20120413
  Receipt Date: 20120103
  Transmission Date: 20120825
  Serious: No
  Sender: FDA-Public Use
  Company Number: US-ASTRAZENECA-2010SE58415

PATIENT
  Age: 63 Year
  Sex: Female

DRUGS (2)
  1. NEXIUM [Suspect]
     Dosage: SOMETIMES TAKES TWO TIMES A DAY
     Route: 048
  2. NEXIUM [Suspect]
     Route: 048

REACTIONS (9)
  - INCORRECT DOSE ADMINISTERED [None]
  - OESOPHAGEAL PAIN [None]
  - DRUG DOSE OMISSION [None]
  - GASTROOESOPHAGEAL REFLUX DISEASE [None]
  - ABDOMINAL DISCOMFORT [None]
  - ASTHENIA [None]
  - WEIGHT DECREASED [None]
  - DYSPHAGIA [None]
  - INSOMNIA [None]
